FAERS Safety Report 4925258-1 (Version None)
Quarter: 2006Q1

REPORT INFORMATION
  Report Type: 
  Country: None (occurrence: None)
  Receive Date: 20060228
  Receipt Date: 20060216
  Transmission Date: 20060701
  Serious: Yes (Life-Threatening, Hospitalization)
  Sender: FDA-Public Use
  Company Number: US-JNJFOC-20060202023

PATIENT
  Sex: Male
  Weight: 87.82 kg

DRUGS (9)
  1. DOXIL [Suspect]
     Indication: PERIPHERAL T-CELL LYMPHOMA UNSPECIFIED
     Route: 042
  2. ELSPAR [Suspect]
     Indication: PERIPHERAL T-CELL LYMPHOMA UNSPECIFIED
  3. METHOTREXATE [Suspect]
     Indication: PERIPHERAL T-CELL LYMPHOMA UNSPECIFIED
  4. PREDNISONE [Suspect]
     Indication: PERIPHERAL T-CELL LYMPHOMA UNSPECIFIED
  5. LEUCOVORIN CALCIUM [Suspect]
     Indication: PERIPHERAL T-CELL LYMPHOMA UNSPECIFIED
  6. ALLOPURINOL [Concomitant]
  7. PROSCAR [Concomitant]
  8. ZOFRAN [Concomitant]
  9. ATIVAN [Concomitant]

REACTIONS (1)
  - ACUTE MYOCARDIAL INFARCTION [None]
